FAERS Safety Report 17201272 (Version 3)
Quarter: 2020Q1

REPORT INFORMATION
  Report Type: Report from Study
  Country: None (occurrence: PT)
  Receive Date: 20191226
  Receipt Date: 20200120
  Transmission Date: 20200409
  Serious: Yes (Hospitalization)
  Sender: FDA-Public Use
  Company Number: PT-ABBVIE-19K-130-3207390-00

PATIENT
  Sex: Female

DRUGS (5)
  1. SALAZOPIRINA [Concomitant]
     Active Substance: SULFASALAZINE
     Indication: AXIAL SPONDYLOARTHRITIS
     Dosage: DAILY
     Route: 048
  2. ETORICOXIB. [Concomitant]
     Active Substance: ETORICOXIB
     Indication: AXIAL SPONDYLOARTHRITIS
     Dosage: DAILY
     Route: 048
  3. HUMIRA [Suspect]
     Active Substance: ADALIMUMAB
     Indication: AXIAL SPONDYLOARTHRITIS
     Route: 058
     Dates: start: 20190409, end: 20191217
  4. HUMIRA [Suspect]
     Active Substance: ADALIMUMAB
     Route: 058
     Dates: start: 20200109
  5. DEFLAZACORT [Concomitant]
     Active Substance: DEFLAZACORT
     Indication: AXIAL SPONDYLOARTHRITIS
     Dosage: DAILY
     Route: 048

REACTIONS (3)
  - Intervertebral disc protrusion [Recovered/Resolved]
  - Nerve compression [Recovered/Resolved]
  - Pain in extremity [Recovering/Resolving]

NARRATIVE: CASE EVENT DATE: 2019
